FAERS Safety Report 4967939-X (Version None)
Quarter: 2006Q2

REPORT INFORMATION
  Report Type: 
  Country: None (occurrence: None)
  Receive Date: 20060410
  Receipt Date: 20060403
  Transmission Date: 20061013
  Serious: Yes (Other)
  Sender: FDA-Public Use
  Company Number: BR-BRISTOL-MYERS SQUIBB COMPANY-13334479

PATIENT
  Age: 69 Year
  Sex: Female
  Weight: 50 kg

DRUGS (6)
  1. TEQUIN [Suspect]
     Indication: EAR INFECTION
     Dates: start: 20060331, end: 20060401
  2. OS-CAL [Concomitant]
  3. ATENOLOL [Concomitant]
  4. GINKGO BILOBA [Concomitant]
  5. METFORMIN HYDROCHLORIDE [Concomitant]
  6. ISOFLAVONE [Concomitant]

REACTIONS (5)
  - ABDOMINAL PAIN UPPER [None]
  - ASTHENIA [None]
  - BLOOD GLUCOSE ABNORMAL [None]
  - FEELING HOT [None]
  - TREMOR [None]
